FAERS Safety Report 11524027 (Version 1)
Quarter: 2015Q3

REPORT INFORMATION
  Report Type: Spontaneous
  Country: US (occurrence: US)
  Receive Date: 20150903
  Receipt Date: 20150903
  Transmission Date: 20151125
  Serious: No
  Sender: FDA-Public Use
  Company Number: US-ELI_LILLY_AND_COMPANY-US201305000533

PATIENT
  Sex: Female

DRUGS (1)
  1. CYMBALTA [Suspect]
     Active Substance: DULOXETINE HYDROCHLORIDE
     Indication: FIBROMYALGIA
     Dosage: 30 MG, QD
     Dates: start: 20130424

REACTIONS (6)
  - Lip swelling [Recovered/Resolved]
  - Headache [Unknown]
  - Oedema peripheral [Unknown]
  - Swelling [Unknown]
  - Hypoxia [Unknown]
  - Poor quality sleep [Unknown]
